FAERS Safety Report 18459919 (Version 1)
Quarter: 2020Q4

REPORT INFORMATION
  Report Type: Spontaneous
  Country: SE (occurrence: SE)
  Receive Date: 20201104
  Receipt Date: 20201104
  Transmission Date: 20210114
  Serious: Yes (Hospitalization)
  Sender: FDA-Public Use
  Company Number: SE-TEVA-2020-SE-1843320

PATIENT
  Age: 18 Year
  Sex: Female

DRUGS (1)
  1. ISOTRETINOIN. [Suspect]
     Active Substance: ISOTRETINOIN
     Indication: ACNE
     Dosage: STARTED TREATMENT IN THE SPRING OF 2020
     Route: 048
     Dates: end: 20200629

REACTIONS (1)
  - Idiopathic intracranial hypertension [Recovered/Resolved with Sequelae]

NARRATIVE: CASE EVENT DATE: 2020
